FAERS Safety Report 15996890 (Version 2)
Quarter: 2019Q1

REPORT INFORMATION
  Report Type: Report from Study
  Country: ES (occurrence: ES)
  Receive Date: 20190222
  Receipt Date: 20190305
  Transmission Date: 20190418
  Serious: Yes (Hospitalization)
  Sender: FDA-Public Use
  Company Number: ES-REGENERON PHARMACEUTICALS, INC.-2019-19037

PATIENT

DRUGS (33)
  1. RED BLOOD CELLS [Concomitant]
     Active Substance: HUMAN RED BLOOD CELL
     Indication: PROPHYLAXIS
     Dosage: 2 POOLS/DAY
     Route: 042
     Dates: start: 20190225, end: 20190225
  2. RED BLOOD CELLS [Concomitant]
     Active Substance: HUMAN RED BLOOD CELL
     Dosage: 2 POOLS/DAY
     Route: 042
     Dates: start: 20190212, end: 20190212
  3. PLATELETS [Concomitant]
     Active Substance: HUMAN PLATELET, ALLOGENIC
     Dosage: 1 POOLS/DAY
     Route: 042
     Dates: start: 20190215, end: 20190215
  4. PLATELETS [Concomitant]
     Active Substance: HUMAN PLATELET, ALLOGENIC
     Dosage: 1 POOLS/DAY
     Route: 042
     Dates: start: 20190208, end: 20190208
  5. ACYCLOVIR                          /00587301/ [Concomitant]
     Active Substance: ACYCLOVIR
     Indication: PROPHYLAXIS
     Dosage: 800 MG, QD
     Route: 048
     Dates: start: 20190130
  6. OMEPRAZOL                          /00661201/ [Concomitant]
     Active Substance: OMEPRAZOLE
     Indication: PROPHYLAXIS
     Dosage: 20 MG, QD
     Route: 048
     Dates: start: 20190130
  7. PLATELETS [Concomitant]
     Active Substance: HUMAN PLATELET, ALLOGENIC
     Dosage: 1 POOLS/DAY
     Route: 042
     Dates: start: 20190212, end: 20190212
  8. PLATELETS [Concomitant]
     Active Substance: HUMAN PLATELET, ALLOGENIC
     Dosage: 1 POOLS/DAY
     Route: 042
     Dates: start: 20190201, end: 20190201
  9. BINOCRIT [Concomitant]
     Active Substance: ERYTHROPOIETIN
     Indication: PROPHYLAXIS
     Dosage: 30000 IU, QD
     Route: 058
     Dates: start: 20190130
  10. MST                                /00021210/ [Concomitant]
     Indication: PROPHYLAXIS
     Dosage: 40 MG, QD
     Route: 058
     Dates: start: 20190130
  11. PLATELETS [Concomitant]
     Active Substance: HUMAN PLATELET, ALLOGENIC
     Indication: PROPHYLAXIS
     Dosage: 1 POOLS/DAY
     Route: 042
     Dates: start: 20190222, end: 20190222
  12. RANITIDINE. [Concomitant]
     Active Substance: RANITIDINE
     Dosage: 50 MG, QD
     Route: 042
     Dates: start: 20190130, end: 20190130
  13. RED BLOOD CELLS [Concomitant]
     Active Substance: HUMAN RED BLOOD CELL
     Dosage: 2 POOLS/DAY
     Route: 042
     Dates: start: 20190215, end: 20190215
  14. RED BLOOD CELLS [Concomitant]
     Active Substance: HUMAN RED BLOOD CELL
     Dosage: 2 POOLS/DAY
     Route: 042
     Dates: start: 20190204, end: 20190204
  15. PLATELETS [Concomitant]
     Active Substance: HUMAN PLATELET, ALLOGENIC
     Dosage: 1 POOLS/DAY
     Route: 042
     Dates: start: 20190204, end: 20190204
  16. BUDESONIDE. [Concomitant]
     Active Substance: BUDESONIDE
     Indication: PROPHYLAXIS
     Dosage: 800 UG, QD
     Route: 055
     Dates: start: 20190130
  17. CLEXANE [Concomitant]
     Active Substance: ENOXAPARIN SODIUM
     Indication: PROPHYLAXIS
     Dosage: 20 MG, QD
     Route: 058
     Dates: start: 20190130
  18. ISATUXIMAB [Suspect]
     Active Substance: ISATUXIMAB
     Indication: PLASMA CELL MYELOMA
     Dosage: 10 MG/KG, QW
     Route: 042
     Dates: start: 20190130, end: 20190130
  19. DEXCHLORPHENIRAMINE [Concomitant]
     Active Substance: DEXCHLORPHENIRAMINE
     Dosage: 5 MG, QD
     Route: 042
     Dates: start: 20190130, end: 20190130
  20. PLATELETS [Concomitant]
     Active Substance: HUMAN PLATELET, ALLOGENIC
     Dosage: 1 POOLS/DAY
     Route: 042
     Dates: start: 20190219, end: 20190219
  21. SEPTRIN [Concomitant]
     Active Substance: SULFAMETHOXAZOLE\TRIMETHOPRIM
     Indication: PROPHYLAXIS
     Dosage: 160 MG, QD
     Route: 058
     Dates: start: 20190130
  22. ISATUXIMAB [Suspect]
     Active Substance: ISATUXIMAB
     Dosage: 10 MG/KG, QW
     Route: 042
     Dates: start: 20190213, end: 20190213
  23. DEXCHLORPHENIRAMINE [Concomitant]
     Active Substance: DEXCHLORPHENIRAMINE
     Indication: PROPHYLAXIS
     Dosage: 5 MG, QD
     Route: 042
     Dates: start: 20190205, end: 20190205
  24. RED BLOOD CELLS [Concomitant]
     Active Substance: HUMAN RED BLOOD CELL
     Dosage: 2 POOLS/DAY
     Route: 042
     Dates: start: 20190201, end: 20190201
  25. PARACETAMOL [Concomitant]
     Active Substance: ACETAMINOPHEN
     Indication: PROPHYLAXIS
     Dosage: 1000 MG, QD
     Route: 042
     Dates: start: 20190205, end: 20190205
  26. PARACETAMOL [Concomitant]
     Active Substance: ACETAMINOPHEN
     Dosage: 1000 MG, QD
     Route: 042
     Dates: start: 20190130, end: 20190130
  27. RANITIDINE. [Concomitant]
     Active Substance: RANITIDINE
     Indication: PROPHYLAXIS
     Dosage: 50 MG, QD
     Route: 042
     Dates: start: 20190205, end: 20190205
  28. ATROVENT [Concomitant]
     Active Substance: IPRATROPIUM BROMIDE
     Indication: PROPHYLAXIS
     Dosage: 80 UG, QD
     Route: 055
     Dates: start: 20190130
  29. ENTECAVIR. [Concomitant]
     Active Substance: ENTECAVIR
     Indication: PROPHYLAXIS
     Dosage: 0.5 MG, QD
     Route: 048
     Dates: start: 20190208
  30. CEMIPLIMAB [Suspect]
     Active Substance: CEMIPLIMAB
     Indication: PLASMA CELL MYELOMA
     Dosage: 250 MG, QOW
     Route: 042
     Dates: start: 20190213, end: 20190213
  31. CEMIPLIMAB [Suspect]
     Active Substance: CEMIPLIMAB
     Dosage: 250 MG, QOW
     Route: 042
     Dates: start: 20190130, end: 20190130
  32. METHYLPREDNISOLONE. [Concomitant]
     Active Substance: METHYLPREDNISOLONE
     Indication: PROPHYLAXIS
     Dosage: 100 MG, QD
     Route: 042
     Dates: start: 20190205, end: 20190205
  33. PLATELETS [Concomitant]
     Active Substance: HUMAN PLATELET, ALLOGENIC
     Dosage: 1 POOLS/DAY
     Route: 042
     Dates: start: 20190217, end: 20190217

REACTIONS (1)
  - Pyrexia [Not Recovered/Not Resolved]

NARRATIVE: CASE EVENT DATE: 20190213
